FAERS Safety Report 22617446 (Version 2)
Quarter: 2024Q3

REPORT INFORMATION
  Report Type: Spontaneous
  Country: US (occurrence: US)
  Receive Date: 20230620
  Receipt Date: 20240712
  Transmission Date: 20241017
  Serious: No
  Sender: PIERRE FABRE MEDICAMENT
  Company Number: US-PFM-2022-04574

PATIENT
  Sex: Female
  Weight: 46.893 kg

DRUGS (4)
  1. HEMANGEOL [Suspect]
     Active Substance: PROPRANOLOL HYDROCHLORIDE
     Indication: Haemangioma
     Dosage: 5 ML, BID (2/DAY)
     Route: 048
  2. HEMANGEOL [Suspect]
     Active Substance: PROPRANOLOL HYDROCHLORIDE
     Dosage: 9 ML, BID (2/DAY) FOR 7 DAYS
     Route: 048
  3. HEMANGEOL [Suspect]
     Active Substance: PROPRANOLOL HYDROCHLORIDE
     Dosage: 12 ML, BID (2/DAY) FOR 7 DAYS
     Route: 048
  4. HEMANGEOL [Suspect]
     Active Substance: PROPRANOLOL HYDROCHLORIDE
     Dosage: 14 ML, BID (2/DAY) FOR 7 DAYS
     Route: 048

REACTIONS (5)
  - Condition aggravated [Unknown]
  - Haemangioma [Unknown]
  - Product dose omission issue [Unknown]
  - Product administered to patient of inappropriate age [Unknown]
  - Off label use [Unknown]
